FAERS Safety Report 8994828 (Version 1)
Quarter: 2012Q4

REPORT INFORMATION
  Report Type: Spontaneous
  Country: US (occurrence: None)
  Receive Date: 20121221
  Receipt Date: 20121221
  Transmission Date: 20130627
  Serious: Yes (Death)
  Sender: FDA-Public Use
  Company Number: 2012ST000774

PATIENT
  Age: 76 Year
  Sex: Male

DRUGS (1)
  1. MATULANE CAPSULES [Suspect]
     Indication: LYMPHOMA
     Route: 048
     Dates: start: 20121031

REACTIONS (1)
  - Death [None]
